FAERS Safety Report 9552776 (Version 1)
Quarter: 2013Q3

REPORT INFORMATION
  Report Type: Spontaneous
  Country: US (occurrence: None)
  Receive Date: 20130924
  Receipt Date: 20130924
  Transmission Date: 20140515
  Serious: Yes (Other)
  Sender: FDA-Public Use
  Company Number: None

PATIENT
  Sex: 0

DRUGS (1)
  1. REMICADE [Suspect]

REACTIONS (3)
  - Dizziness [None]
  - Neuropathy peripheral [None]
  - Alopecia [None]
